FAERS Safety Report 8101815-9 (Version None)
Quarter: 2012Q1

REPORT INFORMATION
  Report Type: 
  Country: None (occurrence: None)
  Receive Date: 20120131
  Receipt Date: 20120125
  Transmission Date: 20120608
  Serious: Yes (Hospitalization)
  Sender: FDA-Public Use
  Company Number: PHHY2011JP099026

PATIENT
  Sex: Male
  Weight: 51 kg

DRUGS (8)
  1. TASIGNA [Suspect]
     Indication: CHRONIC MYELOID LEUKAEMIA
     Dosage: 600 MG, QD
     Route: 048
     Dates: start: 20111018, end: 20111029
  2. MUCOSTA [Concomitant]
     Indication: GASTRIC ULCER
     Dosage: 300 MG, UNK
     Route: 048
  3. ALPRAZOLAM [Concomitant]
     Indication: INSOMNIA
     Dosage: 0.4 MG, UNK
     Route: 048
  4. SELBEX [Concomitant]
     Indication: GASTRIC ULCER
     Dosage: 1.5 MG, UNK
     Route: 048
  5. TASIGNA [Suspect]
     Dosage: 300 MG, DAILY
     Route: 048
     Dates: start: 20111110
  6. CRESTOR [Concomitant]
     Indication: HYPERLIPIDAEMIA
     Dosage: 2.5 MG, UNK
     Route: 048
  7. VERAPAMIL HCL [Concomitant]
     Indication: SINUS TACHYCARDIA
     Dosage: 80 MG, UNK
     Route: 048
  8. DEPAS [Concomitant]
     Indication: INSOMNIA
     Dosage: 0.5 MG, UNK
     Route: 048

REACTIONS (9)
  - NAUSEA [None]
  - HYPOPHAGIA [None]
  - ALANINE AMINOTRANSFERASE INCREASED [None]
  - HAEMOGLOBIN DECREASED [None]
  - CYTOLYTIC HEPATITIS [None]
  - DECREASED APPETITE [None]
  - FATIGUE [None]
  - ASPARTATE AMINOTRANSFERASE INCREASED [None]
  - GASTRIC ULCER HAEMORRHAGE [None]
